FAERS Safety Report 25196330 (Version 3)
Quarter: 2025Q2

REPORT INFORMATION
  Report Type: Report from Study
  Country: US (occurrence: US)
  Receive Date: 20250415
  Receipt Date: 20250612
  Transmission Date: 20250716
  Serious: Yes (Other)
  Sender: TAKEDA
  Company Number: US-TAKEDA-2021TUS030023

PATIENT
  Age: 57 Year
  Sex: Female
  Weight: 58 kg

DRUGS (35)
  1. HUMAN IMMUNOGLOBULIN G [Suspect]
     Active Substance: HUMAN IMMUNOGLOBULIN G
     Indication: IgG deficiency
     Dosage: 6 GRAM, 1/WEEK
     Dates: start: 20210215
  2. HUMAN IMMUNOGLOBULIN G [Suspect]
     Active Substance: HUMAN IMMUNOGLOBULIN G
     Indication: Asthma
     Dosage: 6 GRAM, 1/WEEK
  3. HUMAN IMMUNOGLOBULIN G [Suspect]
     Active Substance: HUMAN IMMUNOGLOBULIN G
     Indication: Immunodeficiency common variable
  4. ACETAMINOPHEN [Concomitant]
     Active Substance: ACETAMINOPHEN
  5. ZYRTEC [Concomitant]
     Active Substance: CETIRIZINE HYDROCHLORIDE
  6. COSENTYX [Concomitant]
     Active Substance: SECUKINUMAB
  7. VITAMIN D [Concomitant]
     Active Substance: VITAMIN D NOS
  8. HYDROCORTISONE [Concomitant]
     Active Substance: HYDROCORTISONE
  9. FLUTICASONE PROPIONATE [Concomitant]
     Active Substance: FLUTICASONE PROPIONATE
  10. DUPIXENT [Concomitant]
     Active Substance: DUPILUMAB
  11. SINGULAIR [Concomitant]
     Active Substance: MONTELUKAST SODIUM
  12. FOLIC ACID [Concomitant]
     Active Substance: FOLIC ACID
  13. MAGNESIUM [Concomitant]
     Active Substance: MAGNESIUM
  14. BREO ELLIPTA [Concomitant]
     Active Substance: FLUTICASONE FUROATE\VILANTEROL TRIFENATATE
  15. NUCALA [Concomitant]
     Active Substance: MEPOLIZUMAB
  16. ALBUTEROL SULFATE [Concomitant]
     Active Substance: ALBUTEROL SULFATE
  17. NEXIUM [Concomitant]
     Active Substance: ESOMEPRAZOLE MAGNESIUM
  18. TIROSINT [Concomitant]
     Active Substance: LEVOTHYROXINE SODIUM
  19. LIDOCAINE [Concomitant]
     Active Substance: LIDOCAINE
  20. VITAMIN B [Concomitant]
     Active Substance: VITAMIN B
  21. EPIPEN [Concomitant]
     Active Substance: EPINEPHRINE
  22. LEVOTHYROXINE SODIUM [Concomitant]
     Active Substance: LEVOTHYROXINE SODIUM
  23. LINZESS [Concomitant]
     Active Substance: LINACLOTIDE
  24. DIPHENHYDRAMINE HYDROCHLORIDE [Concomitant]
     Active Substance: DIPHENHYDRAMINE HYDROCHLORIDE
  25. ZITHROMAX [Concomitant]
     Active Substance: AZITHROMYCIN DIHYDRATE
  26. DIPHENHYDRAMINE [Concomitant]
     Active Substance: DIPHENHYDRAMINE
  27. EPINEPHRINE [Concomitant]
     Active Substance: EPINEPHRINE
  28. FLONASE ALLERGY RELIEF [Concomitant]
     Active Substance: FLUTICASONE PROPIONATE
  29. VENTOLIN [Concomitant]
     Active Substance: ALBUTEROL SULFATE
  30. LEVOTHYROXINE [Concomitant]
     Active Substance: LEVOTHYROXINE
  31. ZANTAC [Concomitant]
     Active Substance: RANITIDINE HYDROCHLORIDE
     Indication: Product used for unknown indication
  32. VITAMIN B12 [Concomitant]
     Active Substance: CYANOCOBALAMIN
  33. VITAMIN D2 [Concomitant]
     Active Substance: ERGOCALCIFEROL
  34. HIZENTRA [Concomitant]
     Active Substance: HUMAN IMMUNOGLOBULIN G
  35. Lmx [Concomitant]

REACTIONS (11)
  - Kidney infection [Not Recovered/Not Resolved]
  - COVID-19 [Unknown]
  - Off label use [Unknown]
  - Product distribution issue [Unknown]
  - Inappropriate schedule of product administration [Unknown]
  - Product dose omission issue [Unknown]
  - Insurance issue [Unknown]
  - Product use issue [Unknown]
  - Blood urine present [Not Recovered/Not Resolved]
  - Illness [Unknown]
  - Sinusitis [Unknown]

NARRATIVE: CASE EVENT DATE: 20210215
